FAERS Safety Report 24577913 (Version 1)
Quarter: 2024Q4

REPORT INFORMATION
  Report Type: Spontaneous
  Country: JP (occurrence: JP)
  Receive Date: 20241104
  Receipt Date: 20241104
  Transmission Date: 20250114
  Serious: Yes (Hospitalization, Other)
  Sender: NIVAGEN PHARMACEUTICALS INC
  Company Number: JP-NPI-000051

PATIENT
  Age: 29 Year
  Sex: Female

DRUGS (2)
  1. BEVACIZUMAB [Suspect]
     Active Substance: BEVACIZUMAB
     Indication: Glioblastoma
     Route: 065
  2. TEMOZOLOMIDE [Suspect]
     Active Substance: TEMOZOLOMIDE
     Indication: Glioblastoma
     Dosage: 200 MG/BODY/DAY
     Route: 065

REACTIONS (4)
  - Hypermutation [Unknown]
  - Disease recurrence [Unknown]
  - Disease progression [Unknown]
  - Therapy partial responder [Unknown]
